FAERS Safety Report 9942247 (Version 1)
Quarter: 2014Q1

REPORT INFORMATION
  Report Type: Spontaneous
  Country: BR (occurrence: BR)
  Receive Date: 20140303
  Receipt Date: 20140303
  Transmission Date: 20141002
  Serious: Yes (Other)
  Sender: FDA-Public Use
  Company Number: BR-SA-2014SA022603

PATIENT
  Age: 44 Year
  Sex: Female
  Weight: 69 kg

DRUGS (8)
  1. APIDRA [Suspect]
     Indication: TYPE 1 DIABETES MELLITUS
     Dosage: 3 ML CARTRIDGE AT A DOSE AS PER THE GLYCEMIC INDEX
     Route: 058
     Dates: start: 2004
  2. LANTUS [Concomitant]
     Indication: TYPE 1 DIABETES MELLITUS
     Dosage: 3ML CARTRIDGE DOSE:64 UNIT(S)
     Route: 058
     Dates: start: 2004
  3. MULTIVITAMINS [Concomitant]
     Dates: start: 201304
  4. CRESTOR [Concomitant]
     Indication: BLOOD CHOLESTEROL
     Dates: start: 2011
  5. SOMALGIN [Concomitant]
     Indication: ANTIPLATELET THERAPY
     Dosage: STRENGTH:100MG
     Dates: start: 2011
  6. CONCOR [Concomitant]
     Indication: CARDIAC DISORDER
     Dates: start: 2011
  7. CLIKSTAR [Concomitant]
     Indication: DEVICE THERAPY
     Dates: start: 2010
  8. CLIKSTAR [Concomitant]
     Indication: DEVICE THERAPY
     Route: 058

REACTIONS (3)
  - Eye disorder [Unknown]
  - Cardiac disorder [Recovering/Resolving]
  - Discomfort [Unknown]
